FAERS Safety Report 25547513 (Version 1)
Quarter: 2025Q3

REPORT INFORMATION
  Report Type: Spontaneous
  Country: US (occurrence: US)
  Receive Date: 20250714
  Receipt Date: 20250714
  Transmission Date: 20251021
  Serious: Yes (Hospitalization, Other)
  Sender: HIKMA
  Company Number: US-20250701113145-c676ad

PATIENT
  Age: 62 Year
  Sex: Female
  Weight: 105.4 kg

DRUGS (3)
  1. CARFILZOMIB [Suspect]
     Active Substance: CARFILZOMIB
     Indication: Plasma cell myeloma
     Dosage: 70 MG/M2, WEEKLY, INTRAVENOUS
     Route: 042
     Dates: start: 20250512
  2. DEXAMETHASONE [Suspect]
     Active Substance: DEXAMETHASONE
     Indication: Plasma cell myeloma
     Dosage: 10 MILLIGRAM, WEEKLY
     Route: 048
     Dates: start: 20250609
  3. ELRANATAMAB [Suspect]
     Active Substance: ELRANATAMAB
     Indication: Plasma cell myeloma
     Dosage: 76 MILLIGRAM, QOW
     Route: 058
     Dates: start: 20250502

REACTIONS (3)
  - Acute kidney injury [Recovered/Resolved]
  - Body temperature increased [Unknown]
  - Blood creatinine increased [Unknown]

NARRATIVE: CASE EVENT DATE: 20250624
